FAERS Safety Report 4759282-9 (Version None)
Quarter: 2005Q3

REPORT INFORMATION
  Report Type: 
  Country: None (occurrence: None)
  Receive Date: 20050831
  Receipt Date: 20050818
  Transmission Date: 20060218
  Serious: Yes (Other)
  Sender: FDA-Public Use
  Company Number: A-CH2005-10442

PATIENT
  Age: 52 Year
  Sex: Female
  Weight: 53 kg

DRUGS (7)
  1. TRACLEER [Suspect]
     Indication: SKIN ULCER
     Dosage: SEE IMAGE
     Route: 048
     Dates: start: 20050422, end: 20050519
  2. TRACLEER [Suspect]
     Indication: SKIN ULCER
     Dosage: SEE IMAGE
     Route: 048
     Dates: start: 20050520, end: 20050609
  3. ACEMIN (LISINOPRIL) [Concomitant]
  4. PANTOLOC (PANTOPRAZOLE) [Concomitant]
  5. NORVASC [Concomitant]
  6. METHYLPREDNISOLONE [Concomitant]
  7. TRANSTEC [Concomitant]

REACTIONS (3)
  - ARTHRALGIA [None]
  - MYALGIA [None]
  - OFF LABEL USE [None]
